FAERS Safety Report 12566379 (Version 2)
Quarter: 2016Q3

REPORT INFORMATION
  Report Type: Other
  Country: US (occurrence: US)
  Receive Date: 20160718
  Receipt Date: 20160808
  Transmission Date: 20161109
  Serious: Yes (Other)
  Sender: FDA-Public Use
  Company Number: US-TEIKOKU PHARMA USA-TPU2016-00478

PATIENT
  Age: 66 Year
  Sex: Male

DRUGS (21)
  1. TRAMADOL HYDROCHLORIDE. [Suspect]
     Active Substance: TRAMADOL HYDROCHLORIDE
     Indication: PAIN MANAGEMENT
     Route: 065
  2. LIDOCAINE PATCH [Suspect]
     Active Substance: LIDOCAINE
     Indication: PAIN MANAGEMENT
     Route: 061
  3. FENTANYL. [Concomitant]
     Active Substance: FENTANYL
  4. GABAPENTIN. [Concomitant]
     Active Substance: GABAPENTIN
  5. TIZANIDINE. [Concomitant]
     Active Substance: TIZANIDINE
  6. BUPRENORPHINE. [Suspect]
     Active Substance: BUPRENORPHINE
     Indication: PAIN MANAGEMENT
     Route: 062
  7. BUPRENORPHINE. [Suspect]
     Active Substance: BUPRENORPHINE
     Route: 062
  8. DULOXETINE. [Concomitant]
     Active Substance: DULOXETINE
  9. METHOCARBAMOL. [Concomitant]
     Active Substance: METHOCARBAMOL
  10. TROLAMINE [Concomitant]
     Active Substance: TROLAMINE
  11. METHADONE [Concomitant]
     Active Substance: METHADONE HYDROCHLORIDE
  12. HYDROCODONE [Concomitant]
     Active Substance: HYDROCODONE
  13. AMITRIPTYLINE [Concomitant]
     Active Substance: AMITRIPTYLINE
  14. MORPHINE [Concomitant]
     Active Substance: MORPHINE
  15. OXYCODONE [Concomitant]
     Active Substance: OXYCODONE
  16. IBUPROFEN. [Concomitant]
     Active Substance: IBUPROFEN
  17. VENLAFAXINE [Concomitant]
     Active Substance: VENLAFAXINE HYDROCHLORIDE
  18. CYCLOBENZAPRINE [Concomitant]
     Active Substance: CYCLOBENZAPRINE
  19. BUPRENORPHINE. [Suspect]
     Active Substance: BUPRENORPHINE
     Route: 062
  20. POLYETHYLENE GLYCOL [Concomitant]
     Active Substance: POLYETHYLENE GLYCOLS
  21. BACLOFEN. [Concomitant]
     Active Substance: BACLOFEN

REACTIONS (11)
  - Skin irritation [Recovered/Resolved]
  - Drug ineffective for unapproved indication [Recovered/Resolved]
  - Incorrect drug administration duration [Recovered/Resolved]
  - Pruritus generalised [Recovered/Resolved]
  - Lethargy [Recovered/Resolved]
  - Mental impairment [Recovered/Resolved]
  - Product use issue [Recovered/Resolved]
  - Dyspnoea [Recovered/Resolved]
  - Pruritus [Recovered/Resolved]
  - Somnolence [Recovered/Resolved]
  - Mental disorder [Recovered/Resolved]
